FAERS Safety Report 15100575 (Version 1)
Quarter: 2018Q3

REPORT INFORMATION
  Report Type: Spontaneous
  Country: US (occurrence: US)
  Receive Date: 20180703
  Receipt Date: 20180703
  Transmission Date: 20181010
  Serious: No
  Sender: FDA-Public Use
  Company Number: US-GLENMARK PHARMACEUTICALS-2017GMK029332

PATIENT

DRUGS (4)
  1. NORETHINDRONE. [Suspect]
     Active Substance: NORETHINDRONE
     Indication: SYNCOPE
  2. NORETHINDRONE. [Suspect]
     Active Substance: NORETHINDRONE
     Indication: MENSTRUAL DISORDER
     Dosage: 1 DF, QD
     Route: 048
     Dates: start: 20171008
  3. NORETHINDRONE. [Suspect]
     Active Substance: NORETHINDRONE
     Indication: HAEMORRHAGE
  4. NORETHINDRONE. [Suspect]
     Active Substance: NORETHINDRONE
     Indication: MUSCLE SPASMS

REACTIONS (2)
  - Drug dose omission [Unknown]
  - Product use in unapproved indication [Unknown]

NARRATIVE: CASE EVENT DATE: 20171008
